FAERS Safety Report 24984772 (Version 1)
Quarter: 2025Q1

REPORT INFORMATION
  Report Type: Spontaneous
  Country: FR (occurrence: FR)
  Receive Date: 20250219
  Receipt Date: 20250219
  Transmission Date: 20250408
  Serious: Yes (Other)
  Sender: AUROBINDO
  Company Number: FR-AFSSAPS-AN2025000065

PATIENT
  Age: 22 Year
  Sex: Female
  Weight: 78 kg

DRUGS (3)
  1. LETROZOLE [Suspect]
     Active Substance: LETROZOLE
     Indication: Breast cancer
     Dosage: 2.5 MILLIGRAM, ONCE A DAY
     Route: 048
     Dates: start: 20241004
  2. LEUPROLIDE [Suspect]
     Active Substance: LEUPROLIDE
     Indication: Breast cancer
     Route: 058
     Dates: start: 20241004
  3. ABEMACICLIB [Suspect]
     Active Substance: ABEMACICLIB
     Indication: Breast cancer
     Dosage: 300 MILLIGRAM, ONCE A DAY
     Route: 048
     Dates: start: 20241202, end: 20241227

REACTIONS (2)
  - Iridocyclitis [Recovering/Resolving]
  - Headache [Recovered/Resolved]

NARRATIVE: CASE EVENT DATE: 20241222
